FAERS Safety Report 9016106 (Version 2)
Quarter: 2013Q3

REPORT INFORMATION
  Report Type: Spontaneous
  Country: GB (occurrence: GB)
  Receive Date: 20130116
  Receipt Date: 20130930
  Transmission Date: 20140515
  Serious: Yes (Disabling)
  Sender: FDA-Public Use
  Company Number: GB-MERCK-1301GBR006243

PATIENT
  Age: 65 Year
  Sex: Male

DRUGS (9)
  1. EZETIMIBE [Suspect]
     Indication: HYPERCHOLESTEROLAEMIA
     Dosage: 10 MG, QD
     Route: 048
  2. AMLODIPINE [Concomitant]
     Dosage: 10 MG, QD
     Route: 048
  3. ATORVASTATIN [Concomitant]
     Dosage: 40 MG, QD
     Route: 048
  4. BENDROFLUMETHIAZIDE [Concomitant]
     Dosage: 2.5 MG, QD
     Route: 048
  5. DOXAZOSIN MESYLATE [Concomitant]
     Dosage: 8 MG, QD
     Route: 048
  6. LANSOPRAZOLE [Concomitant]
     Dosage: 30 MG, QD
     Route: 048
  7. LISINOPRIL [Concomitant]
     Dosage: 20 MG, QD
     Route: 048
  8. METRONIDAZOLE [Concomitant]
  9. VITAMIN B COMPOUND STRONG [Concomitant]
     Route: 048

REACTIONS (1)
  - Muscle twitching [Recovered/Resolved]
